FAERS Safety Report 4282685-6 (Version None)
Quarter: 2004Q1

REPORT INFORMATION
  Report Type: 
  Country: None (occurrence: None)
  Receive Date: 20040130
  Receipt Date: 20030220
  Transmission Date: 20041129
  Serious: No
  Sender: FDA-Public Use
  Company Number: US-BRISTOL-MYERS SQUIBB COMPANY-12191052

PATIENT
  Sex: Female

DRUGS (2)
  1. SERZONE [Suspect]
     Indication: DEPRESSION
     Dosage: STARTED THERAPY ^SIX WEEKS AGO^ AT 600 MG DAILY; REDUCED TO 375 MG ^FIVE DAYS AGO^
     Route: 048
     Dates: start: 20030101
  2. WELLBUTRIN [Concomitant]

REACTIONS (5)
  - ABDOMINAL PAIN UPPER [None]
  - CHILLS [None]
  - DYSPHAGIA [None]
  - HEADACHE [None]
  - SOMNOLENCE [None]
